FAERS Safety Report 9478107 (Version 1)
Quarter: 2013Q3

REPORT INFORMATION
  Report Type: Spontaneous
  Country: US (occurrence: US)
  Receive Date: 20130827
  Receipt Date: 20130827
  Transmission Date: 20140515
  Serious: Yes (Hospitalization)
  Sender: FDA-Public Use
  Company Number: US-BAYER-2013-103053

PATIENT
  Age: 27 Year
  Sex: Female

DRUGS (7)
  1. YASMIN [Suspect]
  2. METHYLPREDNISOLONE [Concomitant]
     Dosage: 4 MG, UNK
  3. INDOCIN [Concomitant]
  4. VICODIN [Concomitant]
  5. PERCOCET [Concomitant]
  6. ULTRAM [Concomitant]
  7. TYLENOL [PARACETAMOL] [Concomitant]

REACTIONS (1)
  - Pulmonary embolism [Recovered/Resolved]
